FAERS Safety Report 8324416-6 (Version None)
Quarter: 2012Q1

REPORT INFORMATION
  Report Type: 
  Country: None (occurrence: None)
  Receive Date: 20120315
  Receipt Date: 20110519
  Transmission Date: 20120608
  Serious: No
  Sender: FDA-Public Use
  Company Number: PHHY2011US43914

PATIENT
  Age: 43 Year
  Sex: Female

DRUGS (1)
  1. GLIENYA (FTY) CAPSULE, 0.5 MG [Suspect]
     Indication: MULTIPLE SCLEROSIS
     Dosage: 0.5 MG, DAILY, ORAL
     Route: 048
     Dates: start: 20110511

REACTIONS (7)
  - APHTHOUS STOMATITIS [None]
  - NASAL DISCOMFORT [None]
  - OROPHARYNGEAL PAIN [None]
  - BLISTER [None]
  - FATIGUE [None]
  - SINUS HEADACHE [None]
  - SINUSITIS [None]
